FAERS Safety Report 4364286-4 (Version None)
Quarter: 2004Q2

REPORT INFORMATION
  Report Type: 
  Country: None (occurrence: None)
  Receive Date: 20040525
  Receipt Date: 20040514
  Transmission Date: 20050107
  Serious: Yes (Life-Threatening)
  Sender: FDA-Public Use
  Company Number: US-MERCK-0405USA01109

PATIENT
  Age: 59 Year
  Sex: Female

DRUGS (8)
  1. ZYRTEC [Concomitant]
     Route: 065
  2. NEXIUM [Concomitant]
     Route: 065
  3. PREMARIN [Concomitant]
     Route: 065
  4. BENICAR HCT [Concomitant]
     Route: 065
  5. VIOXX [Suspect]
     Indication: BACK PAIN
     Route: 048
     Dates: start: 20040101, end: 20040101
  6. VIOXX [Suspect]
     Route: 048
     Dates: start: 20040101, end: 20040101
  7. VIOXX [Suspect]
     Route: 048
     Dates: start: 20040421, end: 20040421
  8. VIOXX [Suspect]
     Route: 048
     Dates: start: 20040101, end: 20040101

REACTIONS (4)
  - OROPHARYNGEAL SWELLING [None]
  - RASH MACULAR [None]
  - SWELLING FACE [None]
  - SWOLLEN TONGUE [None]
